FAERS Safety Report 8901673 (Version 1)
Quarter: 2012Q4

REPORT INFORMATION
  Report Type: Spontaneous
  Country: US (occurrence: None)
  Receive Date: 20121108
  Receipt Date: 20121108
  Transmission Date: 20130627
  Serious: Yes (Hospitalization)
  Sender: FDA-Public Use
  Company Number: None

PATIENT
  Sex: Female
  Weight: 48.4 kg

DRUGS (1)
  1. CETUXIMAB [Suspect]
     Dosage: Cetuximab (Erbitux) 350 mg

REACTIONS (1)
  - Mucosal inflammation [None]
